FAERS Safety Report 5999132-6 (Version None)
Quarter: 2008Q4

REPORT INFORMATION
  Report Type: 
  Country: None (occurrence: None)
  Receive Date: 20081215
  Receipt Date: 20080307
  Transmission Date: 20090506
  Serious: Yes (Hospitalization)
  Sender: FDA-Public Use
  Company Number: DE-PFIZER INC-2008022389

PATIENT

DRUGS (5)
  1. IRINOTECAN HCL [Suspect]
     Indication: COLORECTAL CANCER METASTATIC
     Dosage: OD, BI-WEEKLY
     Route: 042
     Dates: start: 20080116
  2. BEVACIZUMAB [Suspect]
     Indication: COLORECTAL CANCER METASTATIC
     Dosage: OD, BI-WEEKLY
     Route: 042
     Dates: start: 20080116
  3. FLUOROURACIL [Suspect]
     Indication: COLORECTAL CANCER METASTATIC
     Dosage: OD, BI-WEEKLY
     Route: 042
     Dates: start: 20080116
  4. FOLINIC ACID [Suspect]
     Indication: COLORECTAL CANCER METASTATIC
     Dosage: OD, BI-WEEKLY
     Route: 042
     Dates: start: 20080116
  5. ACETYLSALICYLIC ACID [Concomitant]
     Route: 048

REACTIONS (1)
  - CONVULSION [None]
